FAERS Safety Report 23207179 (Version 2)
Quarter: 2024Q1

REPORT INFORMATION
  Report Type: Spontaneous
  Country: JP (occurrence: JP)
  Receive Date: 20231120
  Receipt Date: 20240229
  Transmission Date: 20240410
  Serious: Yes (Death)
  Sender: FDA-Public Use
  Company Number: JP-002147023-NVSJ2023JP016180

PATIENT

DRUGS (1)
  1. RUXOLITINIB [Suspect]
     Active Substance: RUXOLITINIB
     Indication: Acute graft versus host disease
     Dosage: 20 MG
     Route: 048
     Dates: start: 202309

REACTIONS (2)
  - Disease progression [Fatal]
  - Acute graft versus host disease [Fatal]

NARRATIVE: CASE EVENT DATE: 20231001
